FAERS Safety Report 6771218-8 (Version None)
Quarter: 2010Q2

REPORT INFORMATION
  Report Type: 
  Country: None (occurrence: None)
  Receive Date: 20100616
  Receipt Date: 20100602
  Transmission Date: 20101027
  Serious: Yes (Other)
  Sender: FDA-Public Use
  Company Number: US-ASTRAZENECA-2009UW11008

PATIENT
  Sex: Female

DRUGS (10)
  1. SEROQUEL [Suspect]
     Dosage: 25-100 MG
     Route: 048
     Dates: start: 20001124
  2. DIOVAN [Concomitant]
     Dates: start: 20070215
  3. EFFEXOR [Concomitant]
     Dates: start: 20070215
  4. LYRICA [Concomitant]
     Dates: start: 20070215
  5. GLUCOPHAGE [Concomitant]
     Dates: start: 20070215
  6. PRAVACHOL [Concomitant]
     Dates: start: 20070215
  7. SINGULAIR [Concomitant]
     Dates: start: 20070215
  8. XANAX [Concomitant]
     Dates: start: 20070215
  9. REQUIP [Concomitant]
     Dates: start: 20001124
  10. NEURONTIN [Concomitant]
     Dosage: 300-600 MG
     Dates: start: 20001124

REACTIONS (2)
  - DIABETES MELLITUS [None]
  - NEUROPATHY PERIPHERAL [None]
